FAERS Safety Report 10159022 (Version 1)
Quarter: 2014Q2

REPORT INFORMATION
  Report Type: Spontaneous
  Country: US (occurrence: US)
  Receive Date: 20140508
  Receipt Date: 20140508
  Transmission Date: 20141212
  Serious: No
  Sender: FDA-Public Use
  Company Number: US-BIOGENIDEC-2014BI040251

PATIENT
  Age: 57 Year
  Sex: Female

DRUGS (9)
  1. TECFIDERA [Suspect]
     Indication: MULTIPLE SCLEROSIS
     Route: 048
     Dates: start: 201404
  2. ALEVE [Concomitant]
  3. ASPIRIN [Concomitant]
  4. AMLODIPINE BESYLATE [Concomitant]
  5. BACLOFEN [Concomitant]
  6. CALCIUM [Concomitant]
  7. KEPPRA [Concomitant]
  8. TRAZODONE [Concomitant]
  9. LOSARTAN HYDROCHLOROTHIAZIDE [Concomitant]

REACTIONS (2)
  - Fatigue [Unknown]
  - Abdominal pain upper [Unknown]
